FAERS Safety Report 15583133 (Version 1)
Quarter: 2018Q4

REPORT INFORMATION
  Report Type: Spontaneous
  Country: US (occurrence: US)
  Receive Date: 20181105
  Receipt Date: 20181105
  Transmission Date: 20190205
  Serious: No
  Sender: FDA-Public Use
  Company Number: US-SHIRE-US201843020

PATIENT
  Sex: Female

DRUGS (1)
  1. GATTEX [Suspect]
     Active Substance: TEDUGLUTIDE\WATER
     Indication: PRODUCT USED FOR UNKNOWN INDICATION
     Dosage: 0.16 MG/KG, 1X/DAY:QD
     Route: 065
     Dates: start: 20180731

REACTIONS (3)
  - Stoma site discharge [Unknown]
  - Frequent bowel movements [Unknown]
  - Drug ineffective [Unknown]
